FAERS Safety Report 21338460 (Version 1)
Quarter: 2022Q3

REPORT INFORMATION
  Report Type: Spontaneous
  Country: US (occurrence: US)
  Receive Date: 20220915
  Receipt Date: 20220915
  Transmission Date: 20221027
  Serious: Yes (Hospitalization, Other)
  Sender: FDA-Public Use
  Company Number: US-SA-2022SA363403

PATIENT
  Age: 58 Year
  Sex: Male

DRUGS (1)
  1. LIBTAYO [Suspect]
     Active Substance: CEMIPLIMAB-RWLC
     Indication: Metastatic squamous cell carcinoma
     Dosage: 350 MG, Q3W (COMPLETED 2 CYCLES)
     Dates: start: 202006

REACTIONS (2)
  - Cerebrovascular accident [Unknown]
  - Wound infection [Unknown]

NARRATIVE: CASE EVENT DATE: 20200101
